FAERS Safety Report 21974364 (Version 1)
Quarter: 2023Q1

REPORT INFORMATION
  Report Type: Spontaneous
  Country: US (occurrence: US)
  Receive Date: 20230209
  Receipt Date: 20230209
  Transmission Date: 20230418
  Serious: No
  Sender: FDA-Public Use
  Company Number: US-BAYER-2023A013587

PATIENT
  Age: 76 Year
  Sex: Male

DRUGS (1)
  1. KERENDIA [Suspect]
     Active Substance: FINERENONE

REACTIONS (3)
  - Peripheral swelling [None]
  - Skin discolouration [None]
  - Dizziness [None]

NARRATIVE: CASE EVENT DATE: 20230118
